FAERS Safety Report 12689543 (Version 2)
Quarter: 2016Q3

REPORT INFORMATION
  Report Type: Report from Study
  Country: TR (occurrence: TR)
  Receive Date: 20160826
  Receipt Date: 20160906
  Transmission Date: 20161109
  Serious: Yes (Hospitalization, Other)
  Sender: FDA-Public Use
  Company Number: TR-SUN PHARMACEUTICAL INDUSTRIES LTD-2016RR-122854

PATIENT
  Age: 11 Year
  Sex: Male

DRUGS (1)
  1. CHLORPHENIRAMINE. [Suspect]
     Active Substance: CHLORPHENIRAMINE
     Indication: NASOPHARYNGITIS
     Dosage: 4 MG, UNK
     Route: 048

REACTIONS (1)
  - Dystonia [Recovered/Resolved]
